FAERS Safety Report 11099700 (Version 1)
Quarter: 2015Q2

REPORT INFORMATION
  Report Type: Spontaneous
  Country: GB (occurrence: GB)
  Receive Date: 20150508
  Receipt Date: 20150508
  Transmission Date: 20150821
  Serious: Yes (Life-Threatening, Other)
  Sender: FDA-Public Use
  Company Number: GB-ROCHE-1569702

PATIENT
  Age: 64 Year
  Sex: Male

DRUGS (13)
  1. FUROSEMIDE SODIUM [Concomitant]
     Active Substance: FUROSEMIDE SODIUM
     Route: 065
  2. SPIRONOLACTONE. [Concomitant]
     Active Substance: SPIRONOLACTONE
     Route: 065
  3. SITAGLIPTIN [Concomitant]
     Active Substance: SITAGLIPTIN
     Route: 065
  4. ASPIRIN. [Concomitant]
     Active Substance: ASPIRIN
     Route: 065
  5. BETAHISTINE [Concomitant]
     Active Substance: BETAHISTINE
     Route: 065
  6. BISOPROLOL [Concomitant]
     Active Substance: BISOPROLOL
     Route: 065
  7. GLICLAZIDE [Concomitant]
     Active Substance: GLICLAZIDE
     Route: 065
  8. CITALOPRAM [Concomitant]
     Active Substance: CITALOPRAM HYDROBROMIDE
     Route: 065
  9. PERINDOPRIL ARGININE [Concomitant]
     Active Substance: PERINDOPRIL ARGININE
     Route: 065
  10. ORLISTAT [Suspect]
     Active Substance: ORLISTAT
     Indication: OBESITY
     Dosage: STANDARD
     Route: 048
     Dates: start: 20140101, end: 20150126
  11. METFORMIN [Concomitant]
     Active Substance: METFORMIN HYDROCHLORIDE
     Route: 065
  12. ATORVASTATIN [Concomitant]
     Active Substance: ATORVASTATIN
     Route: 065
  13. LANSOPRAZOLE. [Concomitant]
     Active Substance: LANSOPRAZOLE
     Route: 065

REACTIONS (4)
  - Kidney fibrosis [Not Recovered/Not Resolved]
  - Nephropathy [Not Recovered/Not Resolved]
  - Hyperoxaluria [Recovered/Resolved]
  - Acute kidney injury [Not Recovered/Not Resolved]

NARRATIVE: CASE EVENT DATE: 20140101
